FAERS Safety Report 21178020 (Version 2)
Quarter: 2022Q3

REPORT INFORMATION
  Report Type: Report from Study
  Country: US (occurrence: US)
  Receive Date: 20220805
  Receipt Date: 20220808
  Transmission Date: 20221026
  Serious: Yes (Other)
  Sender: FDA-Public Use
  Company Number: US-UCBSA-2022030369

PATIENT
  Age: 36 Year
  Sex: Female

DRUGS (2)
  1. CERTOLIZUMAB PEGOL [Suspect]
     Active Substance: CERTOLIZUMAB PEGOL
     Indication: Axial spondyloarthritis
     Dosage: 400 MILLIGRAM, EV 2 WEEKS(QOW)
     Route: 058
     Dates: start: 20220520, end: 2022
  2. CERTOLIZUMAB PEGOL [Suspect]
     Active Substance: CERTOLIZUMAB PEGOL
     Dosage: 400 MILLIGRAM, EV 4 WEEKS
     Route: 058
     Dates: start: 2022, end: 20220603

REACTIONS (4)
  - Staphylococcal infection [Not Recovered/Not Resolved]
  - Injection site bruising [Not Recovered/Not Resolved]
  - Myalgia [Recovering/Resolving]
  - Incorrect route of product administration [Unknown]

NARRATIVE: CASE EVENT DATE: 20220520
